FAERS Safety Report 9284484 (Version 6)
Quarter: 2014Q3

REPORT INFORMATION
  Report Type: Spontaneous
  Country: US (occurrence: US)
  Receive Date: 20130510
  Receipt Date: 20140918
  Transmission Date: 20150326
  Serious: Yes (Hospitalization, Other)
  Sender: FDA-Public Use
  Company Number: US-SANOFI-AVENTIS-2013SA046110

PATIENT
  Age: 78 Year
  Sex: Female
  Weight: 92.07 kg

DRUGS (29)
  1. COUMADIN [Concomitant]
     Active Substance: WARFARIN SODIUM
  2. LIPITOR [Concomitant]
     Active Substance: ATORVASTATIN CALCIUM
     Route: 048
  3. WARFARIN [Concomitant]
     Active Substance: WARFARIN
     Dosage: ALTERNATING WITH 5 MG BY MOUTH EVERY EVENING
  4. RIFAXIMIN [Concomitant]
     Active Substance: RIFAXIMIN
  5. ZOLOFT [Concomitant]
     Active Substance: SERTRALINE HYDROCHLORIDE
     Route: 048
  6. ASPIRIN ^BAYER^ [Concomitant]
     Active Substance: ASPIRIN
     Dosage: CHEWABLE TABLET ONCE IN AM
  7. DIGOXIN. [Concomitant]
     Active Substance: DIGOXIN
     Route: 048
  8. LASIX [Concomitant]
     Active Substance: FUROSEMIDE
     Route: 048
  9. DULCOLAX [Concomitant]
     Active Substance: BISACODYL OR DOCUSATE SODIUM
     Dosage: RECTAL SUPPOSITORY?USED AS NEEDED
  10. TYLENOL [Concomitant]
     Active Substance: ACETAMINOPHEN
     Indication: PAIN
     Route: 048
  11. PRILOSEC [Concomitant]
     Active Substance: OMEPRAZOLE MAGNESIUM
     Route: 048
  12. LIPITOR [Concomitant]
     Active Substance: ATORVASTATIN CALCIUM
     Indication: HYPERLIPIDAEMIA
     Route: 065
     Dates: start: 20110401, end: 20110808
  13. HAVRIX [Concomitant]
     Active Substance: HEPATITIS A VIRUS STRAIN HM175 ANTIGEN (FORMALDEHYDE INACTIVATED)
     Dosage: 2 DOSES, 1ST DOSE NOW AND 2ND DOSE IN 6 MONTHS
     Route: 030
  14. ENGERIX B [Concomitant]
     Dosage: 2 DOSES (TOTAL: 40 MCG/DOSE)
  15. MULTAQ [Suspect]
     Active Substance: DRONEDARONE
     Indication: CARDIAC FAILURE CONGESTIVE
     Route: 048
     Dates: start: 20110401, end: 20110808
  16. LOPRESSOR [Concomitant]
     Active Substance: METOPROLOL TARTRATE
     Route: 048
  17. COLACE [Concomitant]
     Active Substance: DOCUSATE SODIUM
  18. DELTASONE [Concomitant]
     Active Substance: PREDNISONE
     Route: 048
  19. DIGOXIN. [Concomitant]
     Active Substance: DIGOXIN
     Route: 048
  20. PAXIL [Concomitant]
     Active Substance: PAROXETINE HYDROCHLORIDE
     Route: 048
  21. ALDACTONE [Concomitant]
     Active Substance: SPIRONOLACTONE
     Route: 048
  22. SYNTHROID [Concomitant]
     Active Substance: LEVOTHYROXINE SODIUM
     Route: 048
  23. CARDIZEM [Concomitant]
     Active Substance: DILTIAZEM HYDROCHLORIDE
     Route: 048
  24. MAG-OX [Concomitant]
     Route: 048
  25. MULTAQ [Suspect]
     Active Substance: DRONEDARONE
     Indication: ATRIAL FIBRILLATION
     Route: 048
     Dates: start: 20110401, end: 20110808
  26. CLONIDINE. [Concomitant]
     Active Substance: CLONIDINE
     Route: 048
  27. LOPRESSOR [Concomitant]
     Active Substance: METOPROLOL TARTRATE
     Route: 048
  28. POTASSIUM CHLORIDE. [Concomitant]
     Active Substance: POTASSIUM CHLORIDE
     Route: 048
  29. IMURAN [Concomitant]
     Active Substance: AZATHIOPRINE
     Route: 048

REACTIONS (19)
  - Urine analysis abnormal [Recovered/Resolved]
  - International normalised ratio increased [Not Recovered/Not Resolved]
  - Epistaxis [Not Recovered/Not Resolved]
  - Pain [Not Recovered/Not Resolved]
  - Abdominal pain lower [Unknown]
  - Phlebitis [Unknown]
  - Hepatic failure [Not Recovered/Not Resolved]
  - Renal failure [Recovered/Resolved]
  - Gait disturbance [Not Recovered/Not Resolved]
  - Autoimmune hepatitis [Not Recovered/Not Resolved]
  - Malaise [Not Recovered/Not Resolved]
  - Jaundice [Unknown]
  - Sleep disorder [Unknown]
  - Fatigue [Recovered/Resolved]
  - Haematemesis [Not Recovered/Not Resolved]
  - Cardiac failure congestive [Unknown]
  - Hepatic cirrhosis [Not Recovered/Not Resolved]
  - Headache [Unknown]
  - Back pain [Unknown]

NARRATIVE: CASE EVENT DATE: 20110601
